FAERS Safety Report 5761615-1 (Version None)
Quarter: 2008Q2

REPORT INFORMATION
  Report Type: 
  Country: None (occurrence: None)
  Receive Date: 20080606
  Receipt Date: 20080527
  Transmission Date: 20081010
  Serious: Yes (Other)
  Sender: FDA-Public Use
  Company Number: AU-PFIZER INC-2008040107

PATIENT
  Sex: Male
  Weight: 85 kg

DRUGS (4)
  1. CHANTIX [Suspect]
     Indication: NICOTINE DEPENDENCE
     Route: 048
     Dates: start: 20080328, end: 20080502
  2. EFFEXOR [Concomitant]
     Route: 048
  3. DIAZEPAM [Concomitant]
     Route: 048
  4. METHADONE HCL [Concomitant]
     Route: 048

REACTIONS (5)
  - AGGRESSION [None]
  - AMNESIA [None]
  - ANXIETY [None]
  - DEPRESSED MOOD [None]
  - PANIC REACTION [None]
